FAERS Safety Report 5324426-7 (Version None)
Quarter: 2007Q2

REPORT INFORMATION
  Report Type: 
  Country: None (occurrence: None)
  Receive Date: 20070514
  Receipt Date: 20070502
  Transmission Date: 20071010
  Serious: Yes (Other)
  Sender: FDA-Public Use
  Company Number: US-PFIZER INC-2007036874

PATIENT
  Sex: Male

DRUGS (1)
  1. NEURONTIN (SOLUTION) [Suspect]
     Indication: NERVE INJURY
     Dosage: DAILY DOSE:7200ML

REACTIONS (2)
  - AMNESIA [None]
  - LOSS OF EMPLOYMENT [None]
